FAERS Safety Report 6544569-X (Version None)
Quarter: 2010Q1

REPORT INFORMATION
  Report Type: 
  Country: None (occurrence: None)
  Receive Date: 20100120
  Receipt Date: 20100120
  Transmission Date: 20100710
  Serious: Yes (Other)
  Sender: FDA-Public Use
  Company Number: None

PATIENT
  Sex: Female
  Weight: 86.1834 kg

DRUGS (2)
  1. PEGASYS [Suspect]
     Indication: HEPATITIS C
     Dosage: 180 MCG PREFILLED SYRINGE WEEKLY SQ
     Route: 058
     Dates: start: 20091229
  2. RIBAVARIN [Suspect]
     Indication: HEPATITIS C
     Dosage: 600/600 MG DAILY PO
     Route: 048
     Dates: start: 20091229

REACTIONS (6)
  - ABASIA [None]
  - ACTIVITIES OF DAILY LIVING IMPAIRED [None]
  - DEPRESSION [None]
  - DYSSTASIA [None]
  - ERYTHEMA NODOSUM [None]
  - PAIN [None]
